FAERS Safety Report 5468641-0 (Version None)
Quarter: 2007Q3

REPORT INFORMATION
  Report Type: 
  Country: None (occurrence: None)
  Receive Date: 20070926
  Receipt Date: 20070925
  Transmission Date: 20080115
  Serious: Yes (Hospitalization)
  Sender: FDA-Public Use
  Company Number: A0650320A

PATIENT
  Age: 31 Year
  Sex: Female

DRUGS (1)
  1. NICORETTE [Suspect]
     Indication: DRUG USE FOR UNKNOWN INDICATION
     Dosage: 2MG EIGHT TIMES PER DAY
     Route: 002
     Dates: start: 20070301

REACTIONS (5)
  - CONVULSION [None]
  - GRAND MAL CONVULSION [None]
  - HEADACHE [None]
  - INSOMNIA [None]
  - VOMITING [None]
